FAERS Safety Report 7991705-4 (Version None)
Quarter: 2011Q4

REPORT INFORMATION
  Report Type: 
  Country: None (occurrence: None)
  Receive Date: 20111219
  Receipt Date: 20111215
  Transmission Date: 20120403
  Serious: Yes (Life-Threatening, Other)
  Sender: FDA-Public Use
  Company Number: PHHY2011CA08265

PATIENT
  Sex: Female

DRUGS (6)
  1. SYNTHROID [Concomitant]
  2. ZOLEDRONOC ACID [Suspect]
     Indication: OSTEOPOROSIS
     Route: 042
     Dates: start: 20090114
  3. ZOLEDRONOC ACID [Suspect]
     Route: 042
     Dates: start: 20100128
  4. ZOLEDRONOC ACID [Suspect]
     Dosage: 5 MG
     Route: 042
     Dates: start: 20110203
  5. CALCITE [Concomitant]
  6. CARBAMAZEPINE [Concomitant]
     Dosage: 200 DF, BID

REACTIONS (3)
  - CYANOSIS [None]
  - FATIGUE [None]
  - BRADYCARDIA [None]
